FAERS Safety Report 25951517 (Version 1)
Quarter: 2025Q4

REPORT INFORMATION
  Report Type: Spontaneous
  Country: EU (occurrence: EU)
  Receive Date: 20251023
  Receipt Date: 20251023
  Transmission Date: 20260117
  Serious: Yes (Death, Life-Threatening, Disabling, Congenital Anomaly, Other)
  Sender: TORRENT PHARMA INC.
  Company Number: None

PATIENT
  Sex: Female

DRUGS (3)
  1. QUETIAPINE [Suspect]
     Active Substance: QUETIAPINE
     Indication: Product used for unknown indication
     Dosage: 25 MG PER DAY (FROM MAR-2024 TO AUG-2024 FOR 168 DAYS)
     Route: 064
  2. DULOXETINE [Suspect]
     Active Substance: DULOXETINE
     Indication: Product used for unknown indication
     Dosage: 90 MG PER DAY (FROM MAR-2024 TO AUG-2024 FOR 168 DAYS).
     Route: 064
  3. LEVOTHYROXINE SODIUM [Concomitant]
     Active Substance: LEVOTHYROXINE SODIUM
     Indication: Product used for unknown indication
     Dosage: 100 UG PER DAY (FROM MAR-2024 TO AUG-2024)
     Route: 064

REACTIONS (4)
  - Foetal exposure during pregnancy [Unknown]
  - Cleft lip and palate [Not Recovered/Not Resolved]
  - Encephalocele [Fatal]
  - Atrioventricular septal defect [Not Recovered/Not Resolved]
